FAERS Safety Report 20374744 (Version 1)
Quarter: 2022Q1

REPORT INFORMATION
  Report Type: Spontaneous
  Country: JP (occurrence: JP)
  Receive Date: 20220125
  Receipt Date: 20220125
  Transmission Date: 20220423
  Serious: Yes (Death, Hospitalization, Other)
  Sender: FDA-Public Use
  Company Number: JP-PFIZER INC-202200064555

PATIENT
  Sex: Female

DRUGS (2)
  1. LIPITOR [Suspect]
     Active Substance: ATORVASTATIN CALCIUM
     Indication: Blood cholesterol increased
     Dosage: 1 TABLET DAILY OR IN THE MORNING AND EVENING
     Route: 048
  2. WARFARIN POTASSIUM [Concomitant]
     Active Substance: WARFARIN POTASSIUM
     Indication: Cerebral infarction
     Dosage: UNK
     Route: 048

REACTIONS (14)
  - Lung neoplasm malignant [Fatal]
  - Pneumothorax [Unknown]
  - Pulmonary oedema [Unknown]
  - Deep vein thrombosis [Unknown]
  - Monoplegia [Unknown]
  - Lung disorder [Unknown]
  - Oesophageal oedema [Unknown]
  - Dysphagia [Unknown]
  - Hypophagia [Unknown]
  - Amylase increased [Unknown]
  - Asthenia [Unknown]
  - Myalgia [Unknown]
  - Spinal deformity [Unknown]
  - Movement disorder [Unknown]
